FAERS Safety Report 5682800-3 (Version None)
Quarter: 2008Q1

REPORT INFORMATION
  Report Type: 
  Country: None (occurrence: None)
  Receive Date: 20080327
  Receipt Date: 20080325
  Transmission Date: 20080703
  Serious: Yes (Other)
  Sender: FDA-Public Use
  Company Number: US-ASTRAZENECA-2008UW04782

PATIENT
  Age: 78 Year
  Sex: Female
  Weight: 76.2 kg

DRUGS (7)
  1. ARIMIDEX [Suspect]
     Indication: BREAST CANCER STAGE II
     Route: 048
     Dates: start: 20031006
  2. CALCIUM [Concomitant]
  3. REGLAN [Concomitant]
  4. ALTACE [Concomitant]
  5. LASIX [Concomitant]
  6. TENORMIN [Concomitant]
  7. PRANDIN [Concomitant]

REACTIONS (5)
  - ARTHRALGIA [None]
  - BALANCE DISORDER [None]
  - PRURITUS [None]
  - URTICARIA [None]
  - WEIGHT INCREASED [None]
